FAERS Safety Report 8290495-8 (Version None)
Quarter: 2012Q2

REPORT INFORMATION
  Report Type: 
  Country: None (occurrence: None)
  Receive Date: 20120417
  Receipt Date: 20120112
  Transmission Date: 20120825
  Serious: No
  Sender: FDA-Public Use
  Company Number: US-ASTRAZENECA-2011SE79020

PATIENT
  Age: 69 Year
  Sex: Female

DRUGS (5)
  1. RANITIDINE [Concomitant]
  2. LISINOPRIL [Suspect]
     Route: 048
  3. CALCIUM CARBONATE [Concomitant]
  4. PRILOSEC [Suspect]
     Route: 048
  5. NEXIUM [Suspect]
     Indication: GASTROOESOPHAGEAL REFLUX DISEASE
     Route: 048

REACTIONS (6)
  - DRUG DOSE OMISSION [None]
  - HELICOBACTER INFECTION [None]
  - DRY THROAT [None]
  - COUGH [None]
  - DRUG HYPERSENSITIVITY [None]
  - DRUG INEFFECTIVE [None]
